FAERS Safety Report 13530940 (Version 1)
Quarter: 2017Q2

REPORT INFORMATION
  Report Type: Spontaneous
  Country: GB (occurrence: GB)
  Receive Date: 20170510
  Receipt Date: 20170510
  Transmission Date: 20170830
  Serious: Yes (Hospitalization)
  Sender: FDA-Public Use
  Company Number: GB-ROCHE-1922955

PATIENT
  Age: 47 Year
  Sex: Female
  Weight: 68.9 kg

DRUGS (1)
  1. HERCEPTIN [Suspect]
     Active Substance: TRASTUZUMAB
     Indication: BREAST CANCER
     Route: 058
     Dates: start: 20161011, end: 20170320

REACTIONS (6)
  - Pain in extremity [Unknown]
  - Peripheral swelling [Unknown]
  - Feeling hot [Unknown]
  - Tenderness [Recovered/Resolved]
  - Erythema [Recovered/Resolved]
  - Erythema [Unknown]
